FAERS Safety Report 19815961 (Version 1)
Quarter: 2021Q3

REPORT INFORMATION
  Report Type: Spontaneous
  Country: CA (occurrence: CA)
  Receive Date: 20210910
  Receipt Date: 20210910
  Transmission Date: 20211014
  Serious: Yes (Death)
  Sender: FDA-Public Use
  Company Number: CA-TEVA-2021-CA-1949521

PATIENT
  Age: 53 Year
  Sex: Male

DRUGS (15)
  1. CALCIUM CARBONATE. [Concomitant]
     Active Substance: CALCIUM CARBONATE
  2. PREVACID [Concomitant]
     Active Substance: LANSOPRAZOLE
  3. POLYETHYLENE GLYCOL [Concomitant]
     Active Substance: POLYETHYLENE GLYCOLS
  4. ATROPINE 1% [Concomitant]
     Active Substance: ATROPINE
  5. METFORMIN [Concomitant]
     Active Substance: METFORMIN HYDROCHLORIDE
  6. NADOLOL. [Concomitant]
     Active Substance: NADOLOL
  7. ATORVASTATIN [Suspect]
     Active Substance: ATORVASTATIN
     Indication: DYSLIPIDAEMIA
     Dosage: 20 DOSAGE FORMS DAILY;
     Route: 048
  8. CLOZARIL [Suspect]
     Active Substance: CLOZAPINE
     Indication: SCHIZOPHRENIA
     Dosage: 350 DOSAGE FORMS DAILY;
     Route: 048
  9. LIXIANA [Concomitant]
     Active Substance: EDOXABAN TOSYLATE
  10. VITAMIN D [Concomitant]
     Active Substance: VITAMIN D NOS
  11. FERROUS FUMARATE [Concomitant]
     Active Substance: FERROUS FUMARATE
  12. LOXAPINE. [Concomitant]
     Active Substance: LOXAPINE
  13. MAGNESIUM GLUCONATE [Concomitant]
     Active Substance: MAGNESIUM GLUCONATE
  14. MULTIVITAMINE(S) [Concomitant]
     Active Substance: VITAMINS
  15. PANCRELIPASE. [Concomitant]
     Active Substance: PANCRELIPASE

REACTIONS (1)
  - Sudden death [Fatal]
